FAERS Safety Report 6709364-7 (Version None)
Quarter: 2010Q2

REPORT INFORMATION
  Report Type: 
  Country: None (occurrence: None)
  Receive Date: 20100504
  Receipt Date: 20100420
  Transmission Date: 20101027
  Serious: Yes (Other)
  Sender: FDA-Public Use
  Company Number: PHHY2010FR15506

PATIENT
  Sex: Female

DRUGS (4)
  1. ZOMETA [Suspect]
     Indication: BREAST CANCER METASTATIC
     Dosage: 4 MG MONTHLY
     Dates: start: 20050501, end: 20080501
  2. ZOMETA [Suspect]
     Dosage: 4 MG EVERY 2 MONTHS
     Dates: start: 20090101, end: 20090601
  3. XELODA [Concomitant]
     Indication: BREAST CANCER METASTATIC
     Dosage: 2000 MG DAILY
  4. XELODA [Concomitant]
     Dosage: 2000 MG EVERY 21 DAYS
     Dates: start: 20090201

REACTIONS (3)
  - BONE FRAGMENTATION [None]
  - BONE PAIN [None]
  - OSTEONECROSIS [None]
